FAERS Safety Report 4925048-X (Version None)
Quarter: 2006Q1

REPORT INFORMATION
  Report Type: 
  Country: None (occurrence: None)
  Receive Date: 20060222
  Receipt Date: 20060202
  Transmission Date: 20060701
  Serious: No
  Sender: FDA-Public Use
  Company Number: TPA2006A00200

PATIENT
  Age: 64 Year
  Sex: Female

DRUGS (1)
  1. ROZEREM [Suspect]
     Indication: SOMNOLENCE
     Dosage: 8 MG, PER ORAL
     Route: 048

REACTIONS (1)
  - INTERCEPTED MEDICATION ERROR [None]
